FAERS Safety Report 25054434 (Version 2)
Quarter: 2025Q3

REPORT INFORMATION
  Report Type: Spontaneous
  Country: US (occurrence: US)
  Receive Date: 20250307
  Receipt Date: 20250728
  Transmission Date: 20251021
  Serious: No
  Sender: SANOFI AVENTIS
  Company Number: US-SA-2025SA066181

PATIENT
  Age: 29 Year
  Sex: Female

DRUGS (1)
  1. DUPIXENT [Suspect]
     Active Substance: DUPILUMAB
     Indication: Dermatitis allergic
     Dosage: 300 MG QOW
     Route: 058
     Dates: start: 202402

REACTIONS (4)
  - Dermatitis allergic [Unknown]
  - Condition aggravated [Unknown]
  - Product dose omission issue [Unknown]
  - Eczema [Unknown]

NARRATIVE: CASE EVENT DATE: 20241201
